FAERS Safety Report 4309644-9 (Version None)
Quarter: 2004Q1

REPORT INFORMATION
  Report Type: 
  Country: None (occurrence: None)
  Receive Date: 20040301
  Receipt Date: 20040217
  Transmission Date: 20041129
  Serious: Yes (Death)
  Sender: FDA-Public Use
  Company Number: 2004199838GB

PATIENT
  Age: 49 Year
  Sex: Male

DRUGS (7)
  1. DOXORUBICIN HCL [Suspect]
     Indication: LYMPHOMA
  2. CYCLOPHOSPHAMIDE [Suspect]
     Indication: LYMPHOMA
  3. ETOPOSIDE [Suspect]
     Indication: LYMPHOMA
  4. VINCRISTINE SULFATE [Suspect]
     Indication: LYMPHOMA
  5. METHOTREXATE [Suspect]
     Indication: LYMPHOMA
  6. BLEOMYCIN SULFATE (BLEOMYCIN SULFATE) POWDER, STERILE [Suspect]
     Indication: LYMPHOMA
  7. PREDNISOLONE [Concomitant]

REACTIONS (4)
  - ANASTOMOTIC COMPLICATION [None]
  - GASTRIC PERFORATION [None]
  - GASTROINTESTINAL HAEMORRHAGE [None]
  - MALIGNANT NEOPLASM PROGRESSION [None]
